FAERS Safety Report 6185878-6 (Version None)
Quarter: 2009Q2

REPORT INFORMATION
  Report Type: 
  Country: None (occurrence: None)
  Receive Date: 20090511
  Receipt Date: 20090430
  Transmission Date: 20091009
  Serious: Yes (Hospitalization)
  Sender: FDA-Public Use
  Company Number: B0572594A

PATIENT
  Sex: Female

DRUGS (1)
  1. SEREUPIN [Suspect]
     Indication: PANIC ATTACK
     Route: 065

REACTIONS (8)
  - ANORECTAL DISORDER [None]
  - ENDOMETRIOSIS [None]
  - ERYTHEMA [None]
  - MUSCLE SPASMS [None]
  - MUSCULOSKELETAL PAIN [None]
  - NERVOUS SYSTEM DISORDER [None]
  - PARAESTHESIA [None]
  - PHOTOSENSITIVITY REACTION [None]
